FAERS Safety Report 5262096-7 (Version None)
Quarter: 2007Q1

REPORT INFORMATION
  Report Type: 
  Country: None (occurrence: None)
  Receive Date: 20070311
  Receipt Date: 20070228
  Transmission Date: 20070707
  Serious: Yes (Other)
  Sender: FDA-Public Use
  Company Number: 2006UW10969

PATIENT
  Age: 36 Year
  Sex: Female
  Weight: 81.8 kg

DRUGS (4)
  1. SEROQUEL [Suspect]
     Indication: DEPRESSION
     Route: 048
     Dates: start: 19970101, end: 20060901
  2. ZYPREXA [Concomitant]
  3. CLOZARIL [Concomitant]
  4. THORAZINE [Concomitant]

REACTIONS (2)
  - ABNORMAL DREAMS [None]
  - PANCREATITIS [None]
